FAERS Safety Report 7003971-2 (Version None)
Quarter: 2010Q3

REPORT INFORMATION
  Report Type: 
  Country: None (occurrence: None)
  Receive Date: 20100920
  Receipt Date: 20100108
  Transmission Date: 20110219
  Serious: No
  Sender: FDA-Public Use
  Company Number: US-WYE-H12942810

PATIENT
  Sex: Male
  Weight: 90.8 kg

DRUGS (2)
  1. PRISTIQ [Suspect]
     Indication: DEPRESSION
     Dosage: 50 MG EVERY 1 TOT
     Route: 048
  2. PRISTIQ [Suspect]
     Indication: ANXIETY

REACTIONS (2)
  - FATIGUE [None]
  - SOMNOLENCE [None]
